FAERS Safety Report 16795923 (Version 3)
Quarter: 2019Q4

REPORT INFORMATION
  Report Type: Report from Study
  Country: US (occurrence: US)
  Receive Date: 20190911
  Receipt Date: 20191108
  Transmission Date: 20200122
  Serious: Yes (Other)
  Sender: FDA-Public Use
  Company Number: US-AMGEN-USASL2019145477

PATIENT
  Age: 86 Year
  Sex: Female
  Weight: 79.37 kg

DRUGS (1)
  1. REPATHA [Suspect]
     Active Substance: EVOLOCUMAB
     Indication: ARTERIOSCLEROSIS
     Dosage: 140 MILLIGRAM, Q2WK
     Route: 065
     Dates: start: 20190826

REACTIONS (4)
  - Oropharyngeal pain [Unknown]
  - Diarrhoea [Unknown]
  - Mental impairment [Unknown]
  - Fatigue [Unknown]

NARRATIVE: CASE EVENT DATE: 2019
